FAERS Safety Report 14021905 (Version 1)
Quarter: 2017Q3

REPORT INFORMATION
  Report Type: Report from Study
  Country: BR (occurrence: BR)
  Receive Date: 20170928
  Receipt Date: 20170928
  Transmission Date: 20171128
  Serious: Yes (Death)
  Sender: FDA-Public Use
  Company Number: PHHY2017BR142381

PATIENT
  Sex: Female
  Weight: 80 kg

DRUGS (3)
  1. ALOIS [Concomitant]
     Active Substance: MEMANTINE
     Indication: PRODUCT USED FOR UNKNOWN INDICATION
     Route: 065
  2. EXELON PATCH [Suspect]
     Active Substance: RIVASTIGMINE
     Indication: DEMENTIA ALZHEIMER^S TYPE
     Dosage: 9.5 MG, QD
     Route: 062
     Dates: start: 201708
  3. EXELON PATCH [Suspect]
     Active Substance: RIVASTIGMINE
     Dosage: 9.5 MG, Q12H
     Route: 062
     Dates: end: 20170923

REACTIONS (2)
  - Inappropriate schedule of drug administration [Unknown]
  - Cardiac failure [Fatal]
